FAERS Safety Report 10264484 (Version 1)
Quarter: 2014Q2

REPORT INFORMATION
  Report Type: Spontaneous
  Country: US (occurrence: US)
  Receive Date: 20140627
  Receipt Date: 20140627
  Transmission Date: 20141212
  Serious: No
  Sender: FDA-Public Use
  Company Number: US-BAYER-2014-096617

PATIENT
  Age: 89 Year
  Sex: Female
  Weight: 58 kg

DRUGS (7)
  1. ALEVE CAPLET [Suspect]
     Indication: ARTHRALGIA
     Dosage: 1 DF, QD
     Route: 048
     Dates: start: 2014
  2. THYROXIN [Concomitant]
  3. LOVASTATIN [Concomitant]
  4. FISH OIL [Concomitant]
  5. VITAMIN A [Concomitant]
  6. VITAMIN C [Concomitant]
  7. VITAMIN B12 [Concomitant]

REACTIONS (1)
  - Incorrect drug administration duration [None]
